FAERS Safety Report 9885915 (Version 2)
Quarter: 2014Q1

REPORT INFORMATION
  Report Type: Spontaneous
  Country: US (occurrence: US)
  Receive Date: 20140210
  Receipt Date: 20140328
  Transmission Date: 20141002
  Serious: Yes (Hospitalization, Other)
  Sender: FDA-Public Use
  Company Number: US-AMGEN-USASP2014008038

PATIENT
  Age: 11 Year
  Sex: Male

DRUGS (4)
  1. NPLATE [Suspect]
     Indication: THROMBOCYTOPENIA
     Dosage: 400 MUG, UNK
     Route: 065
     Dates: start: 20131105
  2. FOCALIN [Concomitant]
  3. PRILOSEC                           /00661201/ [Concomitant]
  4. STRATTERA [Concomitant]

REACTIONS (1)
  - Drug ineffective [Unknown]
